FAERS Safety Report 24424119 (Version 1)
Quarter: 2024Q4

REPORT INFORMATION
  Report Type: Spontaneous
  Country: RU (occurrence: RU)
  Receive Date: 20241010
  Receipt Date: 20241010
  Transmission Date: 20250115
  Serious: Yes (Hospitalization, Other)
  Sender: BAYER
  Company Number: RU-BAYER-2024A143910

PATIENT
  Age: 37 Year
  Sex: Female

DRUGS (1)
  1. DROSPIRENONE\ETHINYL ESTRADIOL\LEVOMEFOLATE CALCIUM [Suspect]
     Active Substance: DROSPIRENONE\ETHINYL ESTRADIOL\LEVOMEFOLATE CALCIUM
     Indication: Contraception
     Dosage: 1 DF, QD
     Route: 048
     Dates: start: 202309, end: 20241004

REACTIONS (4)
  - Pregnancy on oral contraceptive [Recovered/Resolved]
  - Abortion spontaneous [None]
  - Haemorrhage in pregnancy [None]
  - Product dose omission issue [None]

NARRATIVE: CASE EVENT DATE: 20240601
